FAERS Safety Report 7774188-9 (Version None)
Quarter: 2011Q3

REPORT INFORMATION
  Report Type: 
  Country: None (occurrence: None)
  Receive Date: 20110923
  Receipt Date: 20110920
  Transmission Date: 20111222
  Serious: Yes (Other)
  Sender: FDA-Public Use
  Company Number: US-PFIZER INC-2011202041

PATIENT
  Sex: Female

DRUGS (3)
  1. CELEBREX [Suspect]
     Indication: PAIN
     Dosage: 200 MG, EVERY 12 HRS
     Route: 048
     Dates: start: 20110811, end: 20110812
  2. CELEBREX [Suspect]
     Indication: INFLAMMATION
  3. SPRINTEC [Concomitant]

REACTIONS (2)
  - ABDOMINOPLASTY [None]
  - DEEP VEIN THROMBOSIS [None]
